FAERS Safety Report 11881684 (Version 2)
Quarter: 2016Q1

REPORT INFORMATION
  Report Type: Spontaneous
  Country: US (occurrence: US)
  Receive Date: 20151231
  Receipt Date: 20160205
  Transmission Date: 20160526
  Serious: No
  Sender: FDA-Public Use
  Company Number: US-PFIZER INC-2015427633

PATIENT
  Age: 79 Year
  Sex: Male

DRUGS (1)
  1. ATORVASTATIN CALCIUM. [Suspect]
     Active Substance: ATORVASTATIN CALCIUM
     Dosage: 20 MG, 1X/DAY
     Route: 048
     Dates: start: 201102

REACTIONS (7)
  - Drug ineffective [Recovered/Resolved]
  - Rash [Unknown]
  - High density lipoprotein increased [Unknown]
  - Abdominal pain upper [Unknown]
  - Liver function test abnormal [Unknown]
  - Flatulence [Unknown]
  - Abdominal distension [Unknown]

NARRATIVE: CASE EVENT DATE: 201102
